FAERS Safety Report 7908770-2 (Version None)
Quarter: 2011Q4

REPORT INFORMATION
  Report Type: 
  Country: None (occurrence: None)
  Receive Date: 20111111
  Receipt Date: 20111107
  Transmission Date: 20120403
  Serious: No
  Sender: FDA-Public Use
  Company Number: US-PFIZER INC-2011272994

PATIENT
  Sex: Female

DRUGS (5)
  1. EFFEXOR [Suspect]
     Indication: ANXIETY
     Dosage: 75 MG, DAILY
     Route: 048
  2. LEVOTHYROXINE SODIUM [Suspect]
     Indication: THYROID DISORDER
     Dosage: 200 UG, DAILY
     Route: 048
  3. INSULIN [Concomitant]
     Indication: DIABETES MELLITUS
     Dosage: 50- 40 UNITS, UNK
  4. CYTOMEL [Suspect]
     Dosage: UNK
     Route: 048
     Dates: end: 20111026
  5. CYTOMEL [Suspect]
     Indication: THYROID DISORDER
     Dosage: 10 UG, DAILY
     Route: 048
     Dates: end: 20111026

REACTIONS (6)
  - TRI-IODOTHYRONINE DECREASED [None]
  - PROGESTERONE DECREASED [None]
  - FEELING ABNORMAL [None]
  - MALAISE [None]
  - FATIGUE [None]
  - BLOOD CORTISOL INCREASED [None]
